FAERS Safety Report 24338472 (Version 1)
Quarter: 2024Q3

REPORT INFORMATION
  Report Type: Spontaneous
  Country: US (occurrence: US)
  Receive Date: 20240919
  Receipt Date: 20240919
  Transmission Date: 20241016
  Serious: Yes (Hospitalization, Other)
  Sender: HIKMA
  Company Number: US-HIKMA PHARMACEUTICALS-US-H14001-24-08446

PATIENT
  Age: 31 Year
  Sex: Male

DRUGS (3)
  1. KETAMINE [Suspect]
     Active Substance: KETAMINE
     Indication: Pain management
     Dosage: 1-3 GRAM, DAILY FOR EIGHT MONTHS
     Route: 030
  2. KETAMINE [Suspect]
     Active Substance: KETAMINE
     Indication: Substance use
     Dosage: 1-3 GRAM, DAILY FOR EIGHT MONTHS
     Route: 042
  3. KETAMINE [Suspect]
     Active Substance: KETAMINE
     Indication: Product used for unknown indication
     Dosage: INSUFFLATING 0.5-1 GRAM EVERY DAY FOR THREE YEARS
     Route: 055

REACTIONS (1)
  - Abdominal pain [Recovering/Resolving]
